FAERS Safety Report 22238581 (Version 1)
Quarter: 2023Q2

REPORT INFORMATION
  Report Type: Spontaneous
  Country: RU (occurrence: None)
  Receive Date: 20230421
  Receipt Date: 20230421
  Transmission Date: 20230722
  Serious: Yes (Other)
  Sender: FDA-Public Use
  Company Number: RU-ROCHE-3331829

PATIENT
  Sex: Male

DRUGS (1)
  1. TOCILIZUMAB [Suspect]
     Active Substance: TOCILIZUMAB
     Indication: Juvenile idiopathic arthritis
     Route: 042

REACTIONS (4)
  - Haemophagocytic lymphohistiocytosis [Unknown]
  - Systolic anterior motion of mitral valve [Unknown]
  - Condition aggravated [Unknown]
  - Infusion related reaction [Unknown]
